FAERS Safety Report 21059437 (Version 1)
Quarter: 2022Q3

REPORT INFORMATION
  Report Type: Spontaneous
  Country: US (occurrence: US)
  Receive Date: 20220708
  Receipt Date: 20220708
  Transmission Date: 20221027
  Serious: No
  Sender: FDA-Public Use
  Company Number: US-PFIZER INC-202200933600

PATIENT
  Age: 74 Year
  Sex: Female
  Weight: 68.04 kg

DRUGS (6)
  1. CELECOXIB [Suspect]
     Active Substance: CELECOXIB
     Indication: Foot fracture
     Dosage: 200 MG, 2X/DAY
  2. CELECOXIB [Suspect]
     Active Substance: CELECOXIB
     Indication: Arthritis
  3. CELECOXIB [Suspect]
     Active Substance: CELECOXIB
     Indication: Peripheral swelling
  4. CELEBREX [Suspect]
     Active Substance: CELECOXIB
     Indication: Foot fracture
     Dosage: 200 MG, 2X/DAY
  5. CELEBREX [Suspect]
     Active Substance: CELECOXIB
     Indication: Arthritis
  6. CELEBREX [Suspect]
     Active Substance: CELECOXIB
     Indication: Peripheral swelling

REACTIONS (5)
  - Product dispensing error [Unknown]
  - Abdominal discomfort [Unknown]
  - Heart rate increased [Unknown]
  - Rash [Unknown]
  - Off label use [Unknown]
